FAERS Safety Report 17271646 (Version 1)
Quarter: 2020Q1

REPORT INFORMATION
  Report Type: Spontaneous
  Country: FR (occurrence: FR)
  Receive Date: 20200115
  Receipt Date: 20200115
  Transmission Date: 20200409
  Serious: Yes (Life-Threatening, Other)
  Sender: FDA-Public Use
  Company Number: FR-CHEPLA-C20200133

PATIENT
  Age: 75 Year
  Sex: Male
  Weight: 86 kg

DRUGS (16)
  1. CYMEVAN 500 MG, LYOPHILISATE FOR PARENTERAL USE (INFUSION) [Suspect]
     Active Substance: GANCICLOVIR
     Indication: CYTOMEGALOVIRUS INFECTION
     Dosage: INDUCTION DOSE (1.25 MG / KG)
     Route: 041
     Dates: start: 201802, end: 20190828
  2. FOSCARNET [Suspect]
     Active Substance: FOSCARNET
     Dates: start: 20190828
  3. TACROLIMUS MONOHYDRATE [Suspect]
     Active Substance: TACROLIMUS
  4. ACIDE FOLIQUE [Concomitant]
     Active Substance: FOLIC ACID
  5. MYCOSTER [Concomitant]
     Active Substance: CICLOPIROX\CICLOPIROX OLAMINE
  6. AMIODARONE (CHLORHYDRATE D^) [Concomitant]
     Active Substance: AMIODARONE HYDROCHLORIDE
  7. CYMEVAN 500 MG, LYOPHILISATE FOR PARENTERAL USE (INFUSION) [Suspect]
     Active Substance: GANCICLOVIR
     Indication: CYTOMEGALOVIRUS INFECTION
     Dosage: 200 MG INSTEAD OF 53 MG / D (PATIENT ON HEMODIALYSIS), NOT ADAPTED TO RENAL FUNCTION
     Route: 041
     Dates: start: 20190910, end: 20190921
  8. REPAGLINIDE. [Concomitant]
     Active Substance: REPAGLINIDE
  9. MYFORTIC [Concomitant]
     Active Substance: MYCOPHENOLATE SODIUM
  10. PREDNISONE. [Suspect]
     Active Substance: PREDNISONE
  11. AZACTAM [Concomitant]
     Active Substance: AZTREONAM
  12. ESIDREX [Concomitant]
     Active Substance: HYDROCHLOROTHIAZIDE
  13. VALGANCICLOVIR. [Suspect]
     Active Substance: VALGANCICLOVIR
     Dates: start: 201802, end: 201908
  14. MOVICOL [Concomitant]
     Active Substance: POLYETHYLENE GLYCOL 3350\POTASSIUM CHLORIDE\SODIUM BICARBONATE\SODIUM CHLORIDE
  15. LASILIX [Concomitant]
     Active Substance: FUROSEMIDE
  16. ZAVICEFTA [Concomitant]
     Active Substance: AVIBACTAM SODIUM\CEFTAZIDIME

REACTIONS (5)
  - Pseudomonas infection [Recovered/Resolved]
  - Drug ineffective [Unknown]
  - Septic shock [Recovered/Resolved]
  - Encephalopathy [Recovered/Resolved]
  - Device related thrombosis [Unknown]

NARRATIVE: CASE EVENT DATE: 20190826
